FAERS Safety Report 24603885 (Version 1)
Quarter: 2024Q4

REPORT INFORMATION
  Report Type: Report from Study
  Country: BY (occurrence: BY)
  Receive Date: 20241111
  Receipt Date: 20241111
  Transmission Date: 20250115
  Serious: Yes (Life-Threatening, Hospitalization)
  Sender: MYLAN
  Company Number: BY-MYLANLABS-2024M1101351

PATIENT
  Age: 83 Year
  Sex: Male
  Weight: 65 kg

DRUGS (14)
  1. PRETOMANID [Suspect]
     Active Substance: PRETOMANID
     Indication: Product used for unknown indication
     Dosage: 200 MILLIGRAM, QD (200 MG OD PO)
     Route: 048
     Dates: start: 20240430
  2. BEDAQUILINE [Suspect]
     Active Substance: BEDAQUILINE
     Indication: Product used for unknown indication
     Dosage: 400 MILLIGRAM, QD (400 MG OD PO FOR 2 WEEKS)
     Route: 048
     Dates: start: 20240430
  3. BEDAQUILINE [Suspect]
     Active Substance: BEDAQUILINE
     Dosage: 200 MILLIGRAM, 3XW (200 MG TIW PO)
     Route: 048
  4. LINEZOLID [Suspect]
     Active Substance: LINEZOLID
     Indication: Product used for unknown indication
     Dosage: 600 MILLIGRAM, QD (600 MG OD PO FOR 112 DOSES)
     Route: 048
     Dates: start: 20240430
  5. LINEZOLID [Suspect]
     Active Substance: LINEZOLID
     Dosage: 300 MILLIGRAM, QD (300 MG OD)
     Route: 048
  6. MOXIFLOXACIN [Suspect]
     Active Substance: MOXIFLOXACIN
     Indication: Product used for unknown indication
     Dosage: 400 MILLIGRAM, QD (400 MG OD PO)
     Route: 048
     Dates: start: 20240430
  7. METFORMIN [Concomitant]
     Active Substance: METFORMIN HYDROCHLORIDE
     Indication: Type 2 diabetes mellitus
     Dosage: 850 MILLIGRAM, BID (850 MG MORNING, EVENING)
     Route: 065
     Dates: start: 20240430, end: 20241014
  8. GLICLAZIDE [Concomitant]
     Active Substance: GLICLAZIDE
     Indication: Type 2 diabetes mellitus
     Dosage: 60 MILLIGRAM, AM (60 MG 1 TABLET MORNING)
     Route: 065
     Dates: start: 20240430, end: 20241014
  9. BISOPROLOL [Concomitant]
     Active Substance: BISOPROLOL\BISOPROLOL FUMARATE
     Indication: Ischaemic heart disease prophylaxis
     Dosage: 1.25 MILLIGRAM, AM (1.25 MG MORNING)
     Route: 065
     Dates: start: 20240430, end: 20241014
  10. PYRIDOXINE [Concomitant]
     Active Substance: PYRIDOXINE
     Indication: Prophylaxis
     Dosage: 100 MILLIGRAM, QD (100 MG AT LUNCH)
     Route: 065
     Dates: start: 20240430, end: 20241014
  11. ASPICARD [Concomitant]
     Indication: Prophylaxis
     Dosage: 75 MILLIGRAM, PM (75 MG EVENING)
     Route: 065
     Dates: start: 20240430, end: 20241014
  12. AMLODIPINE [Concomitant]
     Active Substance: AMLODIPINE BESYLATE
     Dosage: 5 MILLIGRAM, AM (5 MG IN THE MORNING)
     Route: 065
  13. PERINDOPRIL [Concomitant]
     Active Substance: PERINDOPRIL
     Dosage: 5 MILLIGRAM, AM (5 MG IN THE MORNING)
     Route: 065
  14. TAFLUPROST [Concomitant]
     Active Substance: TAFLUPROST
     Dosage: UNK
     Route: 065

REACTIONS (2)
  - Acute kidney injury [Recovered/Resolved]
  - Psychotic disorder [Recovered/Resolved]

NARRATIVE: CASE EVENT DATE: 20240505
